FAERS Safety Report 5247030-8 (Version None)
Quarter: 2007Q1

REPORT INFORMATION
  Report Type: 
  Country: None (occurrence: None)
  Receive Date: 20070226
  Receipt Date: 20070222
  Transmission Date: 20070707
  Serious: Yes (Other)
  Sender: FDA-Public Use
  Company Number: IT-GLAXOSMITHKLINE-B0459618A

PATIENT
  Age: 23 Year
  Sex: Female

DRUGS (2)
  1. CLAVULIN [Suspect]
     Indication: BRONCHITIS
     Dosage: 2MG PER DAY
     Dates: start: 20070106, end: 20070111
  2. ACETAMINOPHEN [Suspect]
     Indication: BRONCHITIS
     Dosage: 500MG AS REQUIRED
     Dates: start: 20070106, end: 20070111

REACTIONS (3)
  - ALANINE AMINOTRANSFERASE INCREASED [None]
  - ASTHENIA [None]
  - MALAISE [None]
